FAERS Safety Report 9152475 (Version 2)
Quarter: 2013Q2

REPORT INFORMATION
  Report Type: Spontaneous
  Country: US (occurrence: US)
  Receive Date: 20130308
  Receipt Date: 20130501
  Transmission Date: 20140414
  Serious: No
  Sender: FDA-Public Use
  Company Number: US-009507513-1303USA004095

PATIENT
  Age: 62 Year
  Sex: Female

DRUGS (7)
  1. CLARITIN-D 12 HOUR [Suspect]
     Indication: OROPHARYNGEAL PAIN
     Dosage: 15 MG, UNKNOWN
     Route: 048
     Dates: start: 20130220
  2. CLARITIN-D 12 HOUR [Suspect]
     Indication: EAR PAIN
  3. CLARITIN-D 12 HOUR [Suspect]
     Indication: EYE PAIN
  4. CLARITIN-D 12 HOUR [Suspect]
     Indication: RHINORRHOEA
  5. CLARITIN-D 12 HOUR [Suspect]
     Indication: MEDICAL OBSERVATION
  6. CLARITIN-D 12 HOUR [Suspect]
     Indication: SINUSITIS
  7. LIPITOR [Concomitant]
     Indication: BLOOD CHOLESTEROL INCREASED
     Dosage: 10 MG, TWICE A WEEK

REACTIONS (1)
  - Expired drug administered [Recovered/Resolved]
